FAERS Safety Report 5262704-0 (Version None)
Quarter: 2007Q1

REPORT INFORMATION
  Report Type: 
  Country: None (occurrence: None)
  Receive Date: 20061218
  Receipt Date: 20060927
  Transmission Date: 20070707
  Serious: Yes (Hospitalization, Other)
  Sender: FDA-Public Use
  Company Number: 2006120246

PATIENT

DRUGS (1)
  1. ARTHROTEC [Suspect]

REACTIONS (1)
  - GASTROINTESTINAL HAEMORRHAGE [None]
